FAERS Safety Report 19575497 (Version 1)
Quarter: 2021Q3

REPORT INFORMATION
  Report Type: Spontaneous
  Country: PL (occurrence: PL)
  Receive Date: 20210719
  Receipt Date: 20210719
  Transmission Date: 20211014
  Serious: Yes (Other)
  Sender: FDA-Public Use
  Company Number: NVSC2021PL153383

PATIENT
  Age: 64 Year
  Sex: Female

DRUGS (3)
  1. VOTRIENT [Suspect]
     Active Substance: PAZOPANIB HYDROCHLORIDE
     Indication: PRODUCT USED FOR UNKNOWN INDICATION
     Dosage: 800 MG, QD
     Route: 065
     Dates: start: 20160310
  2. VOTRIENT [Suspect]
     Active Substance: PAZOPANIB HYDROCHLORIDE
     Dosage: 400 MG
     Route: 065
  3. INTERFERON [Concomitant]
     Active Substance: INTERFERON
     Indication: PRODUCT USED FOR UNKNOWN INDICATION
     Dosage: UNK
     Route: 065

REACTIONS (13)
  - Rash [Unknown]
  - Vomiting [Unknown]
  - Aspartate aminotransferase increased [Recovering/Resolving]
  - Blood thyroid stimulating hormone increased [Unknown]
  - Abdominal pain [Unknown]
  - Respiratory tract infection [Unknown]
  - Haemoglobin decreased [Unknown]
  - Nausea [Unknown]
  - Drug intolerance [Unknown]
  - Pain in extremity [Unknown]
  - Toxicity to various agents [Unknown]
  - Alanine aminotransferase increased [Recovering/Resolving]
  - Influenza like illness [Unknown]

NARRATIVE: CASE EVENT DATE: 201604
